FAERS Safety Report 11939332 (Version 1)
Quarter: 2016Q1

REPORT INFORMATION
  Report Type: Spontaneous
  Country: US (occurrence: US)
  Receive Date: 20160122
  Receipt Date: 20160122
  Transmission Date: 20160526
  Serious: No
  Sender: FDA-Public Use
  Company Number: US-BAYER-2016-013727

PATIENT
  Age: 83 Year
  Sex: Male

DRUGS (3)
  1. LIPITOR [Concomitant]
     Active Substance: ATORVASTATIN CALCIUM
  2. LINAGLIPTIN [Concomitant]
     Active Substance: LINAGLIPTIN
  3. ALEVE [Suspect]
     Active Substance: NAPROXEN SODIUM
     Dosage: 3 DF, WITHIN 3 HOURS OF TIME
     Route: 048
     Dates: start: 20160121, end: 20160121

REACTIONS (1)
  - Product use issue [None]

NARRATIVE: CASE EVENT DATE: 20160121
